FAERS Safety Report 15968941 (Version 2)
Quarter: 2019Q1

REPORT INFORMATION
  Report Type: Report from Study
  Country: US (occurrence: US)
  Receive Date: 20190215
  Receipt Date: 20190306
  Transmission Date: 20190418
  Serious: Yes (Hospitalization, Other)
  Sender: FDA-Public Use
  Company Number: US-SA-2019SA042705

PATIENT
  Age: 54 Year
  Sex: Male

DRUGS (2)
  1. INSULIN GLARGINE [Suspect]
     Active Substance: INSULIN GLARGINE
     Dosage: 20 U, QD
     Route: 058
  2. INSULIN GLARGINE [Suspect]
     Active Substance: INSULIN GLARGINE
     Indication: DIABETES MELLITUS
     Dosage: 10 U, BID
     Route: 058

REACTIONS (5)
  - Ulcer [Unknown]
  - Inappropriate schedule of product administration [Unknown]
  - Leg amputation [Unknown]
  - Toe amputation [Unknown]
  - Foot deformity [Unknown]

NARRATIVE: CASE EVENT DATE: 20160628
